FAERS Safety Report 25854612 (Version 2)
Quarter: 2025Q4

REPORT INFORMATION
  Report Type: Spontaneous
  Country: US (occurrence: US)
  Receive Date: 20250927
  Receipt Date: 20251221
  Transmission Date: 20260118
  Serious: No
  Sender: SANOFI AVENTIS
  Company Number: US-SA-2025SA286563

PATIENT
  Age: 58 Year
  Sex: Male

DRUGS (1)
  1. DUPIXENT [Suspect]
     Active Substance: DUPILUMAB
     Indication: Asthma
     Dosage: 300 MG, QOW
     Route: 058

REACTIONS (7)
  - Fall [Unknown]
  - Blood pressure decreased [Unknown]
  - Fatigue [Unknown]
  - Pain [Unknown]
  - Injection site pain [Unknown]
  - Dyspnoea [Unknown]
  - Therapeutic response shortened [Unknown]
